FAERS Safety Report 8922761 (Version 1)
Quarter: 2012Q4

REPORT INFORMATION
  Report Type: 
  Country: CA (occurrence: CA)
  Receive Date: 20121123
  Receipt Date: 20121123
  Transmission Date: 20130627
  Serious: Yes (Death, Other)
  Sender: FDA-Public Use
  Company Number: PHHY2012CA077129

PATIENT
  Age: 68 Year
  Sex: Male

DRUGS (14)
  1. CLOZARIL [Suspect]
     Indication: SCHIZOAFFECTIVE DISORDER BIPOLAR TYPE
     Dosage: UNK UKN, UNK
     Route: 048
     Dates: start: 20120814
  2. CLOZARIL [Suspect]
     Dosage: 75 mg, daily
     Route: 048
     Dates: start: 20120821, end: 20120902
  3. NICOTINE [Concomitant]
  4. VITAMIN D [Concomitant]
  5. ARICEPT [Concomitant]
  6. LANSOPRAZOLE [Concomitant]
  7. HEPARIN [Concomitant]
     Route: 058
  8. ADVAIR [Concomitant]
  9. SPIRIVA [Concomitant]
  10. DOMPERIDONE [Concomitant]
  11. TYLENOL [Concomitant]
  12. FERROUS SULFATE [Concomitant]
  13. OLANZAPINE [Concomitant]
  14. CLONAZEPAM [Concomitant]

REACTIONS (4)
  - Death [Fatal]
  - Pneumonia aspiration [Unknown]
  - Hyperosmolar state [Unknown]
  - Hypotension [Unknown]
